FAERS Safety Report 8065646-0 (Version None)
Quarter: 2012Q1

REPORT INFORMATION
  Report Type: 
  Country: None (occurrence: None)
  Receive Date: 20120124
  Receipt Date: 20120117
  Transmission Date: 20120608
  Serious: No
  Sender: FDA-Public Use
  Company Number: US-B.I. PHARMACEUTICALS,INC./RIDGEFIELD-2012-BP-00955BP

PATIENT
  Sex: Female

DRUGS (32)
  1. MACRODANTIN [Concomitant]
     Indication: CYSTITIS INTERSTITIAL
     Dosage: 50 MG
     Route: 048
  2. HYDROCO (VICODIN) AP AP [Concomitant]
     Indication: ROAD TRAFFIC ACCIDENT
  3. HYDROCO (VICODIN) AP AP [Concomitant]
     Indication: ARTHRALGIA
  4. SYNTHROID [Concomitant]
     Indication: HYPOTHYROIDISM
     Dosage: 100 MCG
  5. RHINOCORT [Concomitant]
     Indication: SEASONAL ALLERGY
  6. MOBIC [Suspect]
     Indication: FIBROMYALGIA
  7. CELEBREX [Concomitant]
     Indication: ARTHRALGIA
     Dosage: 400 MG
  8. TYLENOL PM [Concomitant]
     Indication: ARTHRITIS
  9. NEXIUM [Concomitant]
     Indication: ULCER
     Dosage: 40 MCG
  10. ZYRTEC [Concomitant]
     Indication: SEASONAL ALLERGY
  11. URISPAS [Concomitant]
     Indication: CYSTITIS INTERSTITIAL
     Route: 048
  12. CARISOPRODOL [Concomitant]
     Indication: PAIN IN EXTREMITY
  13. LIPITOR [Concomitant]
     Indication: BLOOD CHOLESTEROL INCREASED
     Dosage: 10 MCG
  14. MOBIC [Suspect]
     Indication: ARTHRALGIA
     Route: 048
  15. HYDROCO (VICODIN) AP AP [Concomitant]
     Indication: BACK PAIN
  16. CARISOPRODOL [Concomitant]
     Indication: BACK PAIN
  17. TRAMADOL HCT [Concomitant]
     Indication: ARTHRALGIA
  18. TRAMADOL HCT [Concomitant]
     Indication: BACK PAIN
  19. ACETAMINOPHEN [Concomitant]
     Indication: ARTHRITIS
  20. PROTONIX [Concomitant]
     Indication: ULCER
     Dosage: 40 MCG
  21. SAVELLA [Concomitant]
     Indication: BACK PAIN
     Dosage: 100 MG
  22. CELEBREX [Concomitant]
     Indication: FIBROMYALGIA
  23. LOVASTATIN [Concomitant]
     Indication: BLOOD CHOLESTEROL INCREASED
     Dosage: 10 MCG
  24. SINGULAIR [Concomitant]
     Indication: SEASONAL ALLERGY
     Dates: start: 20100201
  25. NASONEX [Concomitant]
     Indication: SEASONAL ALLERGY
  26. SULFAMETHOXAZOLE AND TRIMETHOPRIM DOUBLE STRENGTH [Concomitant]
     Indication: CYSTITIS INTERSTITIAL
     Route: 048
  27. CARISOPRODOL [Concomitant]
     Indication: MUSCLE SPASMS
  28. SAVELLA [Concomitant]
     Indication: ARTHRALGIA
  29. DETROL LA [Concomitant]
     Indication: CYSTITIS INTERSTITIAL
     Route: 048
  30. PERCOGESIC [Concomitant]
     Indication: PAIN
  31. FLONASE [Concomitant]
     Indication: SEASONAL ALLERGY
     Route: 045
  32. ACYCLOVIR [Concomitant]
     Indication: HERPES ZOSTER

REACTIONS (2)
  - DRUG INEFFECTIVE [None]
  - GASTRIC ULCER [None]
